FAERS Safety Report 12189229 (Version 2)
Quarter: 2016Q2

REPORT INFORMATION
  Report Type: Report from Study
  Country: NL (occurrence: NL)
  Receive Date: 20160317
  Receipt Date: 20160603
  Transmission Date: 20160815
  Serious: Yes (Hospitalization, Other)
  Sender: FDA-Public Use
  Company Number: NL-ABBVIE-16P-114-1584258-00

PATIENT
  Sex: Female

DRUGS (1)
  1. DUODOPA [Suspect]
     Active Substance: CARBIDOPA\LEVODOPA
     Indication: PARKINSON^S DISEASE
     Dosage: MORNING DOSE:5.0, CONTINUOUS DOSE:5.2, EXTRA DOSE:3.0 AND NIGHT DOSE:2.6
     Route: 050
     Dates: start: 20100419

REACTIONS (12)
  - Ulna fracture [Recovered/Resolved]
  - Depression [Unknown]
  - Faecal volume increased [Not Recovered/Not Resolved]
  - Weight increased [Not Recovered/Not Resolved]
  - Seborrhoeic dermatitis [Unknown]
  - Off label use [Not Recovered/Not Resolved]
  - Humerus fracture [Recovered/Resolved]
  - Spinal fracture [Unknown]
  - Ovarian cyst [Unknown]
  - Spinal fracture [Unknown]
  - Fatigue [Not Recovered/Not Resolved]
  - On and off phenomenon [Not Recovered/Not Resolved]

NARRATIVE: CASE EVENT DATE: 2010
